FAERS Safety Report 7019651-3 (Version None)
Quarter: 2010Q3

REPORT INFORMATION
  Report Type: 
  Country: None (occurrence: None)
  Receive Date: 20100928
  Receipt Date: 20100920
  Transmission Date: 20110219
  Serious: Yes (Other)
  Sender: FDA-Public Use
  Company Number: PHHY2010US45226

PATIENT
  Age: 85 Year
  Sex: Female

DRUGS (5)
  1. RECLAST [Suspect]
     Dosage: UNK
     Route: 042
     Dates: start: 20090901
  2. VITAMIN D [Concomitant]
     Dosage: UNK
  3. MULTI-VITAMINS [Concomitant]
     Dosage: UNK
  4. CALCIUM [Concomitant]
     Dosage: UNK
  5. ASPIRINE [Concomitant]
     Dosage: UNK

REACTIONS (6)
  - ANAEMIA [None]
  - BLOOD COUNT ABNORMAL [None]
  - INFLUENZA LIKE ILLNESS [None]
  - INFUSION RELATED REACTION [None]
  - KNEE OPERATION [None]
  - MALAISE [None]
